FAERS Safety Report 8583536 (Version 4)
Quarter: 2014Q1

REPORT INFORMATION
  Report Type: Spontaneous
  Country: US (occurrence: US)
  Receive Date: 20120529
  Receipt Date: 20140207
  Transmission Date: 20141002
  Serious: Yes (Hospitalization, Disabling, Other)
  Sender: FDA-Public Use
  Company Number: US-ASTRAZENECA-2012SE32140

PATIENT
  Age: 58 Year
  Sex: Male
  Weight: 122.5 kg

DRUGS (33)
  1. CRESTOR [Suspect]
     Indication: BLOOD CHOLESTEROL ABNORMAL
     Route: 048
     Dates: start: 2010
  2. CRESTOR [Suspect]
     Indication: BLOOD CHOLESTEROL INCREASED
     Route: 048
     Dates: start: 2010
  3. CRESTOR [Suspect]
     Indication: BLOOD CHOLESTEROL ABNORMAL
     Route: 048
  4. CRESTOR [Suspect]
     Indication: BLOOD CHOLESTEROL INCREASED
     Route: 048
  5. LISINOPRIL [Suspect]
     Indication: BLOOD PRESSURE ABNORMAL
     Route: 048
     Dates: start: 2004
  6. LISINOPRIL [Suspect]
     Indication: HYPERTENSION
     Route: 048
     Dates: start: 2004
  7. OMEPRAZOLE [Suspect]
     Indication: GASTROOESOPHAGEAL REFLUX DISEASE
     Route: 048
     Dates: start: 2013
  8. MORPHINE [Suspect]
     Indication: PAIN
     Route: 065
  9. VALSARTAN-HCTZ [Suspect]
     Indication: BLOOD PRESSURE ABNORMAL
     Dosage: 160 12.5MG DAILY
     Route: 048
  10. SYNTHROID [Concomitant]
     Indication: THYROID DISORDER
     Route: 048
     Dates: start: 2009
  11. PLAVIX [Concomitant]
     Indication: CARDIOVASCULAR EVENT PROPHYLAXIS
     Route: 048
  12. ASPIRIN [Concomitant]
     Indication: CARDIAC DISORDER
     Route: 048
  13. ASPIRIN [Concomitant]
     Indication: BLOOD DISORDER
     Route: 048
  14. AMLODIPINE BESYLATE [Concomitant]
     Indication: BLOOD PRESSURE ABNORMAL
     Route: 048
  15. TIZANIDINE HCL [Concomitant]
     Indication: BLOOD PRESSURE ABNORMAL
     Route: 048
  16. GABAPENTINE [Concomitant]
     Indication: NERVOUS SYSTEM DISORDER
     Route: 048
     Dates: start: 201209
  17. GABAPENTINE [Concomitant]
     Indication: NEURALGIA
     Route: 048
     Dates: start: 201209
  18. POTASSIUM-CL-ER [Concomitant]
     Indication: MUSCLE SPASMS
     Route: 048
     Dates: start: 201209
  19. MORPHINE-SULF-ER [Concomitant]
     Indication: PAIN
     Route: 048
     Dates: start: 201209
  20. METFORMIN HCL [Concomitant]
     Indication: DIABETES MELLITUS
     Route: 048
  21. ACIPHEX-EC [Concomitant]
     Indication: GASTROOESOPHAGEAL REFLUX DISEASE
     Route: 048
  22. NOVOLOG [Concomitant]
     Indication: DIABETES MELLITUS
     Dosage: 5 UNITS BEFORE MEALS, DAILY
  23. LANTUS [Concomitant]
     Indication: DIABETES MELLITUS
  24. LANTUS [Concomitant]
     Indication: DIABETES MELLITUS
  25. LANTUS [Concomitant]
     Indication: DIABETES MELLITUS
     Dosage: 66 UNITS IN MORNING DAILY
  26. AMLODIPINE [Concomitant]
     Indication: HYPERTENSION
  27. METOPROLOL TARTRATE [Concomitant]
     Indication: HYPERTENSION
  28. FUROSEMIDE [Concomitant]
     Indication: HYPERTENSION
  29. BACLOFEN [Concomitant]
     Indication: NEURALGIA
     Dosage: 10MG 0.5 OR 1 TAB Q8H
     Dates: start: 201209
  30. OXYCONTIN [Concomitant]
     Indication: NEURALGIA
     Dates: start: 201310
  31. OXYCONTIN [Concomitant]
     Indication: NEURALGIA
     Dosage: 15MG 1.5 TABLETS Q4H
     Dates: start: 201310
  32. CLOPIDOGREL [Concomitant]
     Indication: BLOOD CHOLESTEROL ABNORMAL
  33. LEVOTHYROXINE [Concomitant]
     Indication: THYROID THERAPY
     Dates: start: 2010

REACTIONS (13)
  - Cerebrovascular accident [Recovered/Resolved with Sequelae]
  - Metastases to spine [Recovered/Resolved]
  - Hemiparesis [Unknown]
  - Loss of consciousness [Unknown]
  - Abasia [Unknown]
  - Thyroid cancer [Not Recovered/Not Resolved]
  - Metastases to lung [Recovered/Resolved]
  - Back pain [Not Recovered/Not Resolved]
  - Blood cholesterol increased [Unknown]
  - Gastrooesophageal reflux disease [Not Recovered/Not Resolved]
  - Neuralgia [Not Recovered/Not Resolved]
  - Memory impairment [Unknown]
  - Drug intolerance [Not Recovered/Not Resolved]
